FAERS Safety Report 8358640-3 (Version None)
Quarter: 2012Q2

REPORT INFORMATION
  Report Type: 
  Country: None (occurrence: None)
  Receive Date: 20120514
  Receipt Date: 20120504
  Transmission Date: 20120825
  Serious: Yes (Hospitalization)
  Sender: FDA-Public Use
  Company Number: NL-ROCHE-1059101

PATIENT

DRUGS (6)
  1. FENTANYL-100 [Concomitant]
     Dates: start: 20120417
  2. DIFLUCAN [Concomitant]
     Dates: start: 20120411
  3. XELODA [Suspect]
     Indication: GASTRIC CANCER
     Dosage: CUMULATIVE DOSE REPORTED AS: 144000 MG. LAST DOSE PRIOR TO SAE: 10/APR/2012
     Route: 048
     Dates: start: 20120328
  4. EPIRUBICIN HYDROCHLORIDE [Suspect]
     Indication: GASTRIC CANCER
     Dosage: CUMULATIVE DOSE REPORTED AS: 90 MG. LAST DOSE PRIOR TO SAE:28/MAR/2012
     Route: 042
     Dates: start: 20120328
  5. CISPLATIN [Suspect]
     Indication: GASTRIC CANCER
     Dosage: CUMULATIVE DOSE REPORTED AS: 110 MG. LAST DOSE PRIOR TO SAE:28/MAR/2012
     Route: 042
     Dates: start: 20120328
  6. PRIMPERAN (NETHERLANDS) [Concomitant]
     Dates: start: 20120411

REACTIONS (2)
  - MUCOSAL INFLAMMATION [None]
  - DEHYDRATION [None]
